FAERS Safety Report 5092400-4 (Version None)
Quarter: 2006Q3

REPORT INFORMATION
  Report Type: 
  Country: None (occurrence: None)
  Receive Date: 20060825
  Receipt Date: 20060816
  Transmission Date: 20061208
  Serious: Yes (Hospitalization)
  Sender: FDA-Public Use
  Company Number: T200600868

PATIENT
  Age: 82 Year
  Sex: Male

DRUGS (4)
  1. OPTIRAY 160 [Suspect]
     Indication: COMPUTERISED TOMOGRAM
     Dosage: SINGLE, CUTANEOUS; INTRAVENOUS
     Route: 003
     Dates: start: 20041123, end: 20041123
  2. OPTIRAY 160 [Suspect]
     Indication: COMPUTERISED TOMOGRAM
     Dosage: SINGLE, CUTANEOUS; INTRAVENOUS
     Route: 003
     Dates: start: 20041124, end: 20041124
  3. RESPIRATORY SYSTEM [Concomitant]
  4. DRUGS FOR OBSTRUCTIVE AIRWAY DISEASES INHALER [Concomitant]

REACTIONS (10)
  - ACCIDENTAL EXPOSURE [None]
  - CELLULITIS [None]
  - DRUG ADMINISTRATION ERROR [None]
  - MEDICAL DEVICE COMPLICATION [None]
  - ORAL SOFT TISSUE DISORDER [None]
  - PROCEDURAL COMPLICATION [None]
  - RASH [None]
  - SCAB [None]
  - THERMAL BURN [None]
  - WOUND SECRETION [None]
